FAERS Safety Report 7930308-4 (Version None)
Quarter: 2011Q4

REPORT INFORMATION
  Report Type: 
  Country: None (occurrence: None)
  Receive Date: 20111121
  Receipt Date: 20111115
  Transmission Date: 20120403
  Serious: Yes (Hospitalization, Other)
  Sender: FDA-Public Use
  Company Number: NL-TEVA-309497ISR

PATIENT
  Sex: Female
  Weight: 75 kg

DRUGS (10)
  1. LISINOPRIL A TABLET 10MG [Concomitant]
     Dates: start: 20100101
  2. OMEPRAZOL PCH CAPSULE MSR 20MG [Concomitant]
     Dates: start: 20080623
  3. FOLIUMZUUR PCH TABLET 5MG [Concomitant]
     Dates: start: 20090801
  4. BONVIVA TABLET FILMOMHULD 150MG [Concomitant]
     Dosage: 5 MILLIGRAM;
     Dates: start: 20080701
  5. TAVANIC TABLET OMHULD 250MG [Concomitant]
     Dates: start: 20111001
  6. NORTRILEN TABLET 10MG [Concomitant]
     Dates: start: 20110401
  7. FURADANTINE MC CAPSULE 50MG [Concomitant]
     Indication: CYSTITIS
     Dosage: 50 MILLIGRAM;
     Dates: start: 20111001
  8. CALCI CHEW KAUWTABLET 1000MG [Concomitant]
     Dosage: 1000 MILLIGRAM;
     Dates: start: 20080623
  9. PREDNISOLONE [Suspect]
     Indication: ARTHRITIS
     Dates: start: 20080623
  10. METHOTREXATE [Suspect]
     Dosage: 1.4286 MILLIGRAM;
     Dates: start: 20090801

REACTIONS (6)
  - NECROSIS [None]
  - WEIGHT FLUCTUATION [None]
  - INFLAMMATION [None]
  - DYSPEPSIA [None]
  - RESTLESSNESS [None]
  - SLEEP DISORDER [None]
